FAERS Safety Report 6260467-3 (Version None)
Quarter: 2009Q3

REPORT INFORMATION
  Report Type: 
  Country: None (occurrence: None)
  Receive Date: 20090708
  Receipt Date: 20090701
  Transmission Date: 20100115
  Serious: Yes (Death)
  Sender: FDA-Public Use
  Company Number: US-GILEAD-2009-0022898

PATIENT
  Sex: Female
  Weight: 54.026 kg

DRUGS (17)
  1. LETAIRIS [Suspect]
     Indication: PULMONARY ARTERIAL HYPERTENSION
     Route: 048
     Dates: start: 20080505
  2. REVATIO [Concomitant]
  3. COUMADIN [Concomitant]
  4. DEMADEX [Concomitant]
  5. METOLAZONE [Concomitant]
  6. SYMBICORT [Concomitant]
  7. PULMICORT-100 [Concomitant]
  8. LYRICA [Concomitant]
  9. SYNTHROID [Concomitant]
  10. CRESTOR [Concomitant]
  11. POTASSIUM CHLORIDE [Concomitant]
  12. FERROUS GLUCONATE [Concomitant]
  13. ASPIRIN [Concomitant]
  14. MULTI-VITAMIN [Concomitant]
  15. DARVOCET [Concomitant]
  16. OXYGEN [Concomitant]
  17. LAVELLE PATCH [Concomitant]

REACTIONS (1)
  - DEATH [None]
